FAERS Safety Report 13265674 (Version 1)
Quarter: 2017Q1

REPORT INFORMATION
  Report Type: Spontaneous
  Country: TR (occurrence: TR)
  Receive Date: 20170223
  Receipt Date: 20170223
  Transmission Date: 20170428
  Serious: Yes (Other)
  Sender: FDA-Public Use
  Company Number: TR-BAYER-2017-032409

PATIENT

DRUGS (2)
  1. CIPROFLOXACIN. [Suspect]
     Active Substance: CIPROFLOXACIN
     Indication: URINARY TRACT INFECTION
     Dosage: UNK
  2. METOPROLOL. [Interacting]
     Active Substance: METOPROLOL
     Dosage: UNK

REACTIONS (2)
  - Atrioventricular block complete [Recovered/Resolved]
  - Drug interaction [None]
